FAERS Safety Report 24222186 (Version 2)
Quarter: 2024Q3

REPORT INFORMATION
  Report Type: Spontaneous
  Country: US (occurrence: US)
  Receive Date: 20240819
  Receipt Date: 20240930
  Transmission Date: 20241017
  Serious: Yes (Disabling)
  Sender: ROCHE
  Company Number: US-ROCHE-10000060047

PATIENT
  Age: 51 Year
  Sex: Female
  Weight: 89.81 kg

DRUGS (6)
  1. XOLAIR [Suspect]
     Active Substance: OMALIZUMAB
     Indication: Asthma
     Dosage: 150 MG / 1 EA
     Route: 065
     Dates: start: 20240327
  2. BENADRYL [Concomitant]
     Active Substance: DIPHENHYDRAMINE HYDROCHLORIDE
  3. ALBUTEROL [Concomitant]
     Active Substance: ALBUTEROL
     Dosage: NEBULIZER
  4. STIOLTO RESPIMAT [Concomitant]
     Active Substance: OLODATEROL HYDROCHLORIDE\TIOTROPIUM BROMIDE MONOHYDRATE
  5. PREDNISONE [Concomitant]
     Active Substance: PREDNISONE
  6. ADVAIR HFA [Concomitant]
     Active Substance: FLUTICASONE PROPIONATE\SALMETEROL XINAFOATE
     Route: 055

REACTIONS (3)
  - Injection site reaction [Recovered/Resolved]
  - Contusion [Unknown]
  - Urticaria [Unknown]

NARRATIVE: CASE EVENT DATE: 20240802
